FAERS Safety Report 11147368 (Version 1)
Quarter: 2015Q2

REPORT INFORMATION
  Report Type: Spontaneous
  Country: TW (occurrence: TW)
  Receive Date: 20150528
  Receipt Date: 20150528
  Transmission Date: 20150821
  Serious: Yes (Other)
  Sender: FDA-Public Use
  Company Number: TW-PAR PHARMACEUTICAL, INC-2015SCPR013995

PATIENT

DRUGS (8)
  1. CHLORPHENAMINE [Concomitant]
     Active Substance: CHLORPHENIRAMINE MALEATE
     Indication: RASH
     Dosage: 10 MG, UNKNOWN
     Route: 065
  2. ADRENALIN [Suspect]
     Active Substance: EPINEPHRINE
     Indication: URTICARIA
     Dosage: 1 MG, SINGLE
     Route: 040
  3. DIPHENHYDRAMINE [Concomitant]
     Active Substance: DIPHENHYDRAMINE
     Indication: RASH
     Dosage: 30 MG, UNKNOWN
     Route: 030
  4. BETAMETHASONE [Concomitant]
     Active Substance: BETAMETHASONE
     Indication: RASH
     Dosage: 4 MG, UNKNOWN
  5. FEXOFENADINE [Concomitant]
     Active Substance: FEXOFENADINE\FEXOFENADINE HYDROCHLORIDE
     Indication: RASH
     Dosage: 60 MG, BID
     Route: 048
  6. PREDNISOLONE. [Concomitant]
     Active Substance: PREDNISOLONE
     Indication: RASH
     Dosage: 5 MG, QID
     Route: 048
  7. METHYLPREDNISOLONE. [Concomitant]
     Active Substance: METHYLPREDNISOLONE
     Indication: RASH
     Dosage: 40 MG, EVERY 6 HOURS
  8. DIPHENHYDRAMINE [Concomitant]
     Active Substance: DIPHENHYDRAMINE
     Dosage: 30 MG, EVERY 6 HOURS

REACTIONS (6)
  - Drug administration error [Unknown]
  - Blood pressure systolic increased [Recovered/Resolved]
  - Atrial fibrillation [Recovered/Resolved]
  - Myocardial ischaemia [Recovered/Resolved]
  - Overdose [Unknown]
  - Pallor [Recovered/Resolved]
